FAERS Safety Report 7271485-0 (Version None)
Quarter: 2011Q1

REPORT INFORMATION
  Report Type: 
  Country: None (occurrence: None)
  Receive Date: 20110128
  Receipt Date: 20110128
  Transmission Date: 20110831
  Serious: Yes (Life-Threatening, Hospitalization, Other)
  Sender: FDA-Public Use
  Company Number: None

PATIENT
  Age: 62 Year
  Sex: Male
  Weight: 72.5755 kg

DRUGS (1)
  1. PROPOXYPHENE NAPSYLATE AND ACETAMINOPHEN [Suspect]
     Indication: ABDOMINAL PAIN
     Dosage: 1 TO 2 TABLETS EVERY 6 HRS AS NEEDED FOR PAIN ORALLY
     Route: 048
     Dates: start: 20100510, end: 20101223

REACTIONS (10)
  - ABDOMINAL PAIN [None]
  - ARRHYTHMIA [None]
  - HYPERHIDROSIS [None]
  - FATIGUE [None]
  - ASTHENIA [None]
  - DIZZINESS [None]
  - VISION BLURRED [None]
  - CHEST PAIN [None]
  - HEART RATE INCREASED [None]
  - FEELING ABNORMAL [None]
